FAERS Safety Report 8956335 (Version 1)
Quarter: 2012Q4

REPORT INFORMATION
  Report Type: 
  Country: CA (occurrence: CA)
  Receive Date: 20121210
  Receipt Date: 20121210
  Transmission Date: 20130627
  Serious: Yes (Other)
  Sender: FDA-Public Use
  Company Number: CA-JNJFOC-20121202585

PATIENT
  Age: 30 Year
  Sex: Female

DRUGS (1)
  1. NICORETTE INHALTER 10 MG [Suspect]
     Indication: SMOKING CESSATION THERAPY
     Dosage: on an average 4 cartridges a day
     Route: 055
     Dates: start: 20111201

REACTIONS (2)
  - Nicotine dependence [Not Recovered/Not Resolved]
  - Intentional drug misuse [Unknown]
